FAERS Safety Report 16386215 (Version 1)
Quarter: 2019Q2

REPORT INFORMATION
  Report Type: Spontaneous
  Country: US (occurrence: US)
  Receive Date: 20190603
  Receipt Date: 20190603
  Transmission Date: 20190711
  Serious: No
  Sender: FDA-Public Use
  Company Number: US-OXFORD PHARMACEUTICALS, LLC-2018OXF00072

PATIENT
  Sex: Female

DRUGS (10)
  1. BUSPIRONE HYDROCHLORIDE. [Suspect]
     Active Substance: BUSPIRONE HYDROCHLORIDE
     Dosage: UNK
     Dates: end: 201806
  2. DIVALPROEX [Concomitant]
     Active Substance: DIVALPROEX SODIUM
  3. GABAPENTIN. [Concomitant]
     Active Substance: GABAPENTIN
  4. TRAZODONE [Concomitant]
     Active Substance: TRAZODONE HYDROCHLORIDE
  5. LATUDA [Concomitant]
     Active Substance: LURASIDONE HYDROCHLORIDE
  6. EZETIMEBE [Concomitant]
  7. PRAVASTATIN. [Concomitant]
     Active Substance: PRAVASTATIN
  8. HABITROL PATCH NICOTINE TRANSDERMAL SYSTEM, STEP 1 [Suspect]
     Active Substance: NICOTINE
     Indication: SMOKING CESSATION THERAPY
     Dosage: 21 MG, 1X/DAY
     Route: 062
     Dates: start: 2018, end: 20180601
  9. HABITROL PATCH NICOTINE TRANSDERMAL SYSTEM, STEP 2 [Suspect]
     Active Substance: NICOTINE
     Indication: SMOKING CESSATION THERAPY
     Dosage: 14 MG, 1X/DAY
     Route: 062
     Dates: start: 20180602
  10. PIOGLITAZONE. [Concomitant]
     Active Substance: PIOGLITAZONE

REACTIONS (3)
  - Anxiety [Not Recovered/Not Resolved]
  - Nightmare [Unknown]
  - Tenderness [Unknown]

NARRATIVE: CASE EVENT DATE: 2018
